FAERS Safety Report 9120631 (Version 1)
Quarter: 2013Q1

REPORT INFORMATION
  Report Type: Report from Study
  Country: US (occurrence: US)
  Receive Date: 20130226
  Receipt Date: 20130226
  Transmission Date: 20140127
  Serious: Yes (Other)
  Sender: FDA-Public Use
  Company Number: US-CELGENEUS-163-21880-09080529

PATIENT
  Age: 67 Year
  Sex: Male
  Weight: 110.5 kg

DRUGS (3)
  1. REVLIMID\PLACEBO [Suspect]
     Indication: PLASMA CELL MYELOMA
     Dosage: 10 MILLIGRAM
     Route: 048
     Dates: start: 20071129
  2. REVLIMID\PLACEBO [Suspect]
     Dosage: 15 MILLIGRAM
     Route: 048
     Dates: start: 20080102
  3. REVLIMID\PLACEBO [Suspect]
     Dosage: 10 MILLIGRAM
     Route: 048
     Dates: start: 20090518, end: 20090721

REACTIONS (1)
  - Peripheral motor neuropathy [Recovering/Resolving]
